FAERS Safety Report 10841626 (Version 1)
Quarter: 2015Q1

REPORT INFORMATION
  Report Type: Spontaneous
  Country: SK (occurrence: SK)
  Receive Date: 20150220
  Receipt Date: 20150220
  Transmission Date: 20150721
  Serious: Yes (Death, Life-Threatening)
  Sender: FDA-Public Use
  Company Number: SK-ROCHE-1523189

PATIENT
  Sex: Male
  Weight: 96 kg

DRUGS (3)
  1. OXALIPLATINA [Concomitant]
  2. XELODA [Suspect]
     Active Substance: CAPECITABINE
     Indication: COLORECTAL CANCER
     Dosage: 2X4 TABLETS - 14 DAYS ADMINISTERED AND 7 DAYS NOT
     Route: 048
     Dates: start: 20130626, end: 201409
  3. AVASTIN [Suspect]
     Active Substance: BEVACIZUMAB
     Indication: COLORECTAL CANCER
     Route: 041
     Dates: start: 20130731, end: 20141023

REACTIONS (2)
  - Embolism [Fatal]
  - Palmar-plantar erythrodysaesthesia syndrome [Recovered/Resolved]

NARRATIVE: CASE EVENT DATE: 201311
